FAERS Safety Report 8220245-2 (Version None)
Quarter: 2012Q1

REPORT INFORMATION
  Report Type: 
  Country: None (occurrence: None)
  Receive Date: 20120320
  Receipt Date: 20120312
  Transmission Date: 20120608
  Serious: Yes (Other)
  Sender: FDA-Public Use
  Company Number: BR-ACCORD-012696

PATIENT
  Age: 33 Year
  Sex: Female

DRUGS (1)
  1. TOPIRAMATE [Suspect]
     Indication: MIGRAINE PROPHYLAXIS
     Dosage: DOSE- 25 MG/D FOR 2 WEEKS THAT WAS TO BE INCREASED WEEKLY TO 100 MG DAILY.

REACTIONS (2)
  - METAMORPHOPSIA [None]
  - OFF LABEL USE [None]
